FAERS Safety Report 17262361 (Version 1)
Quarter: 2020Q1

REPORT INFORMATION
  Report Type: Spontaneous
  Country: US (occurrence: US)
  Receive Date: 20200113
  Receipt Date: 20200113
  Transmission Date: 20200409
  Serious: No
  Sender: FDA-Public Use
  Company Number: US-PFIZER INC-2020013065

PATIENT
  Age: 56 Year
  Sex: Female

DRUGS (1)
  1. LIOTHYRONINE SODIUM. [Suspect]
     Active Substance: LIOTHYRONINE SODIUM
     Indication: THYROID DISORDER
     Dosage: UNK, DAILY (300 PILLS PER MONTH, PER DAY)

REACTIONS (2)
  - Cystitis interstitial [Unknown]
  - Bladder disorder [Unknown]
